FAERS Safety Report 6759063-0 (Version None)
Quarter: 2010Q2

REPORT INFORMATION
  Report Type: 
  Country: None (occurrence: None)
  Receive Date: 20100607
  Receipt Date: 20100601
  Transmission Date: 20101027
  Serious: Yes (Hospitalization, Other)
  Sender: FDA-Public Use
  Company Number: JP-B.I. PHARMACEUTICALS,INC./RIDGEFIELD-2010-BP-05443NB

PATIENT
  Age: 62 Year
  Sex: Male

DRUGS (14)
  1. SPIRIVA [Suspect]
     Route: 055
     Dates: end: 20100428
  2. CRESTOR [Suspect]
     Dosage: 2.5 MG
     Route: 048
     Dates: end: 20100428
  3. ALOSITOL [Suspect]
     Dosage: 100 MG
     Route: 048
     Dates: end: 20100428
  4. MUCOSTA [Concomitant]
     Dosage: 300 MG
     Route: 048
  5. ALDACTONE [Concomitant]
     Dosage: 25 MG
     Route: 048
  6. BUFFERIN [Concomitant]
     Dosage: 81 MG
     Route: 048
     Dates: end: 20100428
  7. OLMETEC [Concomitant]
     Dosage: 20 MG
     Route: 048
     Dates: end: 20100428
  8. OMEPRAL [Concomitant]
     Dosage: 20 MG
     Route: 048
     Dates: end: 20100428
  9. ASPARA POTASSIUM [Concomitant]
     Dosage: 300 MG
     Route: 048
  10. THYRADIN S [Concomitant]
     Dosage: 50 MCG
     Route: 048
  11. CONIEL [Concomitant]
     Dosage: 4 MG
     Route: 048
     Dates: end: 20100428
  12. LASIX [Concomitant]
     Dosage: 20 MG
     Route: 048
  13. LAC-B [Concomitant]
     Dosage: 3 MG
     Route: 048
  14. HOKUNALIN:TAPE [Concomitant]
     Route: 062
     Dates: end: 20100428

REACTIONS (1)
  - STEVENS-JOHNSON SYNDROME [None]
